FAERS Safety Report 12602995 (Version 1)
Quarter: 2016Q3

REPORT INFORMATION
  Report Type: Report from Study
  Country: PL (occurrence: PL)
  Receive Date: 20160728
  Receipt Date: 20160728
  Transmission Date: 20161109
  Serious: Yes (Death, Life-Threatening, Hospitalization)
  Sender: FDA-Public Use
  Company Number: PL-ELI_LILLY_AND_COMPANY-PL201605001322

PATIENT
  Age: 71 Year
  Sex: Male
  Weight: 57.9 kg

DRUGS (4)
  1. CLEMASTINUM [Concomitant]
     Active Substance: CLEMASTINE FUMARATE
     Indication: PROPHYLAXIS
     Dosage: 2 MG, UNKNOWN
     Dates: start: 20160404, end: 20160404
  2. RAMUCIRUMAB [Suspect]
     Active Substance: RAMUCIRUMAB
     Indication: ADENOCARCINOMA GASTRIC
     Dosage: 8 MG/KG, CYCLICAL
     Route: 042
     Dates: start: 20160404, end: 20160502
  3. CLEMASTINUM [Concomitant]
     Active Substance: CLEMASTINE FUMARATE
     Dosage: 2 MG, UNKNOWN
     Dates: start: 20160502, end: 20160502
  4. CLEMASTINUM [Concomitant]
     Active Substance: CLEMASTINE FUMARATE
     Dosage: 2 MG, UNKNOWN
     Dates: start: 20160418, end: 20160418

REACTIONS (2)
  - Gastric perforation [Fatal]
  - Abdominal pain [Not Recovered/Not Resolved]

NARRATIVE: CASE EVENT DATE: 20160503
